FAERS Safety Report 11060258 (Version 2)
Quarter: 2015Q2

REPORT INFORMATION
  Report Type: Report from Study
  Country: US (occurrence: US)
  Receive Date: 20150423
  Receipt Date: 20150518
  Transmission Date: 20150821
  Serious: Yes (Hospitalization, Other)
  Sender: FDA-Public Use
  Company Number: US-AMGEN-USASL2015033594

PATIENT
  Age: 83 Year
  Sex: Male

DRUGS (1)
  1. KYPROLIS [Suspect]
     Active Substance: CARFILZOMIB
     Indication: PLASMA CELL MYELOMA
     Dosage: UNK UNK, UNK
     Route: 065
     Dates: start: 20150331

REACTIONS (5)
  - Dyspnoea [Recovering/Resolving]
  - Chest pain [Recovering/Resolving]
  - Transient ischaemic attack [Unknown]
  - Renal disorder [Unknown]
  - Pneumonia [Unknown]

NARRATIVE: CASE EVENT DATE: 20150331
